FAERS Safety Report 6016013-2 (Version None)
Quarter: 2008Q4

REPORT INFORMATION
  Report Type: 
  Country: None (occurrence: None)
  Receive Date: 20081222
  Receipt Date: 20081215
  Transmission Date: 20090506
  Serious: Yes (Death)
  Sender: FDA-Public Use
  Company Number: US-PFIZER INC-2008153719

PATIENT
  Age: 38 Year
  Sex: Female

DRUGS (4)
  1. GABAPENTIN [Suspect]
  2. METHADONE [Suspect]
  3. WARFARIN [Suspect]
  4. AMITRIPTYLINE [Suspect]

REACTIONS (1)
  - ADVERSE DRUG REACTION [None]
